FAERS Safety Report 8608233 (Version 2)
Quarter: 2012Q4

REPORT INFORMATION
  Report Type: 
  Country: US (occurrence: US)
  Receive Date: 20120611
  Receipt Date: 20121214
  Transmission Date: 20130627
  Serious: Yes (Death, Other)
  Sender: FDA-Public Use
  Company Number: US-CELGENEUS-163-21880-12060160

PATIENT

DRUGS (9)
  1. REVLIMID [Suspect]
     Indication: MULTIPLE MYELOMA
     Dosage: 25 Milligram
     Route: 048
  2. ELOTUZUMAB [Suspect]
     Indication: MULTIPLE MYELOMA
     Dosage: 10 or 20 mg/kg
     Route: 041
  3. ELOTUZUMAB [Suspect]
     Dosage: 10 or 20 mg/kg
     Route: 041
  4. DEXAMETHASONE [Suspect]
     Indication: MULTIPLE MYELOMA
     Dosage: 5.7143 Milligram
     Route: 048
  5. DEXAMETHASONE [Suspect]
     Dosage: 8 Milligram
     Route: 041
  6. METHYLPREDNISOLONE [Concomitant]
     Indication: DRUG USE FOR UNKNOWN INDICATION
     Route: 065
  7. DIPHENHYDRAMINE [Concomitant]
     Indication: DRUG USE FOR UNKNOWN INDICATION
     Route: 065
  8. RANITIDINE [Concomitant]
     Indication: DRUG USE FOR UNKNOWN INDICATION
     Route: 065
  9. ACETAMINOPHEN [Concomitant]
     Indication: DRUG USE FOR UNKNOWN INDICATION
     Route: 065

REACTIONS (13)
  - Prostate cancer [Unknown]
  - Bladder cancer [Unknown]
  - Myelodysplastic syndrome [Unknown]
  - Nasal cavity cancer [Unknown]
  - Multi-organ failure [Fatal]
  - Sepsis [Fatal]
  - Pneumonia [Fatal]
  - Disease progression [Fatal]
  - Infusion related reaction [Unknown]
  - Neutropenia [Unknown]
  - Lymphopenia [Unknown]
  - Thrombocytopenia [Unknown]
  - Pneumonia [Unknown]
